FAERS Safety Report 8168565-4 (Version None)
Quarter: 2012Q1

REPORT INFORMATION
  Report Type: 
  Country: None (occurrence: None)
  Receive Date: 20120227
  Receipt Date: 20120223
  Transmission Date: 20120608
  Serious: Yes (Hospitalization)
  Sender: FDA-Public Use
  Company Number: US-PFIZER INC-2008050349

PATIENT
  Sex: Male
  Weight: 79.093 kg

DRUGS (9)
  1. LISINOPRIL [Concomitant]
     Route: 048
     Dates: start: 20080222
  2. LUNESTA [Concomitant]
     Route: 048
     Dates: start: 20080222
  3. LEUCOVORIN CALCIUM [Suspect]
     Dosage: 750 MG (400 MG/KG),  EVERY 2 WEEKS
     Route: 042
     Dates: start: 20080220, end: 20080528
  4. AXITINIB [Suspect]
     Indication: COLORECTAL CANCER METASTATIC
     Dosage: 5 MG, 2X/DAY
     Route: 048
     Dates: start: 20080220, end: 20080612
  5. OXALIPLATIN [Suspect]
     Dosage: 160 MG (85 MG/KG),  EVERY 2 WEEKS
     Route: 042
     Dates: start: 20080220, end: 20080528
  6. FLUOROURACIL [Suspect]
     Dosage: 4212 MG (2400 MG/M2), EVERY 2 WEEKS INFUSION PUMP
     Route: 042
     Dates: start: 20080220, end: 20080530
  7. LEVAQUIN [Concomitant]
     Route: 048
     Dates: start: 20080611, end: 20080612
  8. BEVACIZUMAB [Suspect]
     Dosage: 160 MG (2 MG/KG), EVERY 2 WEEKS
     Route: 042
     Dates: start: 20080220, end: 20080528
  9. FLUOROURACIL [Suspect]
     Dosage: 750 MG (400 MG/M2), EVERY 2 WEEKS INFUSION BOLUS
     Route: 040
     Dates: start: 20080220, end: 20080530

REACTIONS (8)
  - PANCREATITIS [None]
  - FEBRILE NEUTROPENIA [None]
  - CHOLECYSTITIS [None]
  - PSEUDOMEMBRANOUS COLITIS [None]
  - ATELECTASIS [None]
  - METASTASES TO LIVER [None]
  - HEPATITIS [None]
  - HYPOALBUMINAEMIA [None]
